FAERS Safety Report 7824112-5 (Version None)
Quarter: 2011Q4

REPORT INFORMATION
  Report Type: 
  Country: None (occurrence: None)
  Receive Date: 20111019
  Receipt Date: 20111017
  Transmission Date: 20120403
  Serious: Yes (Death, Other)
  Sender: FDA-Public Use
  Company Number: PHFR2011GB01869

PATIENT
  Sex: Male

DRUGS (5)
  1. CLOZARIL [Suspect]
     Indication: SCHIZOPHRENIA
     Dosage: 350 MG/DAY
     Route: 048
     Dates: start: 20101026
  2. TEMAZEPAM [Suspect]
     Route: 048
  3. HEROIN [Suspect]
     Dates: start: 20110101
  4. METHADONE HCL [Suspect]
     Indication: DRUG DEPENDENCE
     Dosage: 45 MG/DAY
     Route: 048
     Dates: start: 20110101
  5. HYOSCINE [Concomitant]
     Indication: SALIVARY HYPERSECRETION
     Dosage: 150 MG/DAY
     Route: 048
     Dates: start: 20101201

REACTIONS (2)
  - DEATH [None]
  - DRUG ABUSE [None]
